FAERS Safety Report 9090543 (Version 1)
Quarter: 2013Q1

REPORT INFORMATION
  Report Type: Report from Study
  Country: US (occurrence: US)
  Receive Date: 20130201
  Receipt Date: 20130201
  Transmission Date: 20140127
  Serious: No
  Sender: FDA-Public Use
  Company Number: US-ABBOTT-12P-163-1019916-00

PATIENT
  Age: 35 Year
  Sex: Female

DRUGS (2)
  1. HUMIRA [Suspect]
     Indication: RHEUMATOID ARTHRITIS
     Dates: start: 20120813
  2. NAPROXEN [Concomitant]
     Indication: INFLAMMATION
     Dosage: 1 TO 2 TABS PER DAY

REACTIONS (1)
  - Infection [Recovering/Resolving]
